FAERS Safety Report 4872652-3 (Version None)
Quarter: 2006Q1

REPORT INFORMATION
  Report Type: 
  Country: None (occurrence: None)
  Receive Date: 20060103
  Receipt Date: 20051222
  Transmission Date: 20060701
  Serious: Yes (Hospitalization, Disabling)
  Sender: FDA-Public Use
  Company Number: FR200512003674

PATIENT
  Age: 78 Year
  Sex: Female
  Weight: 65 kg

DRUGS (3)
  1. GEMZAR [Suspect]
     Indication: BREAST CANCER METASTATIC
     Dosage: INTRAVENOUS
     Route: 042
     Dates: start: 20050303, end: 20050823
  2. ELOXATINE /FRA/ (OXALIPLATIN) [Concomitant]
  3. ZOMETA [Concomitant]

REACTIONS (11)
  - ANAEMIA [None]
  - ANTI-SS-A ANTIBODY POSITIVE [None]
  - BLOOD CREATININE INCREASED [None]
  - BLOOD LACTATE DEHYDROGENASE INCREASED [None]
  - HAPTOGLOBIN DECREASED [None]
  - HYPERGAMMAGLOBULINAEMIA [None]
  - KIDNEY FIBROSIS [None]
  - RED BLOOD CELL SCHISTOCYTES PRESENT [None]
  - SJOGREN'S SYNDROME [None]
  - THROMBOCYTOPENIA [None]
  - THROMBOTIC MICROANGIOPATHY [None]
